FAERS Safety Report 8522523-6 (Version None)
Quarter: 2012Q3

REPORT INFORMATION
  Report Type: 
  Country: None (occurrence: None)
  Receive Date: 20120719
  Receipt Date: 20120716
  Transmission Date: 20120928
  Serious: Yes (Hospitalization, Other)
  Sender: FDA-Public Use
  Company Number: US-AMGEN-USASP2011028958

PATIENT
  Age: 77 Year
  Sex: Female
  Weight: 55.329 kg

DRUGS (2)
  1. NPLATE [Suspect]
     Indication: IDIOPATHIC THROMBOCYTOPENIC PURPURA
     Dosage: 560 MUG, PRN
     Route: 058
     Dates: start: 20101122
  2. DACOGEN [Concomitant]
     Indication: MYELODYSPLASTIC SYNDROME
     Dosage: 32 MG, UNK
     Dates: start: 20111024

REACTIONS (4)
  - INCORRECT ROUTE OF DRUG ADMINISTRATION [None]
  - ACUTE MYELOID LEUKAEMIA [None]
  - DRUG INEFFECTIVE [None]
  - BONE MARROW RETICULIN FIBROSIS [None]
